FAERS Safety Report 17929363 (Version 2)
Quarter: 2022Q2

REPORT INFORMATION
  Report Type: Spontaneous
  Country: CA (occurrence: CA)
  Receive Date: 20200623
  Receipt Date: 20220615
  Transmission Date: 20220720
  Serious: Yes (Death, Life-Threatening, Hospitalization, Other)
  Sender: FDA-Public Use
  Company Number: None

PATIENT
  Age: 72 Year
  Sex: Male

DRUGS (24)
  1. GEMCITABINE [Suspect]
     Active Substance: GEMCITABINE
     Indication: Pancreatic carcinoma metastatic
     Route: 042
  2. ABRAXANE [Suspect]
     Active Substance: PACLITAXEL
     Indication: Pancreatic carcinoma metastatic
     Route: 041
  3. DURVALUMAB [Suspect]
     Active Substance: DURVALUMAB
     Indication: Pancreatic carcinoma metastatic
     Route: 041
  4. TOCILIZUMAB [Suspect]
     Active Substance: TOCILIZUMAB
     Indication: Pancreatic carcinoma metastatic
     Route: 041
  5. ACETAMINOPHEN [Concomitant]
     Active Substance: ACETAMINOPHEN
     Indication: Back pain
     Route: 065
  6. ASPIRIN [Concomitant]
     Active Substance: ASPIRIN
     Indication: Anticoagulant therapy
     Route: 065
  7. CIPROFLOXACIN [Concomitant]
     Active Substance: CIPROFLOXACIN
     Indication: Cough
     Route: 065
  8. CLONAZEPAM [Concomitant]
     Active Substance: CLONAZEPAM
     Indication: Insomnia
     Route: 065
  9. CODEINE [Concomitant]
     Active Substance: CODEINE
     Indication: Cough
     Route: 065
  10. ERGOCALCIFEROL [Concomitant]
     Active Substance: ERGOCALCIFEROL
     Indication: Supplementation therapy
     Route: 065
  11. EZETIMIBE [Concomitant]
     Active Substance: EZETIMIBE
     Indication: Hyperlipidaemia
     Route: 065
  12. FILGRASTIM [Concomitant]
     Active Substance: FILGRASTIM
     Indication: Thrombocytopenia
     Route: 065
  13. GLUCOSE OXIDASE [Concomitant]
     Active Substance: GLUCOSE OXIDASE
     Indication: Dry mouth
     Route: 065
  14. NITROGLYCERIN [Concomitant]
     Active Substance: NITROGLYCERIN
     Indication: Angina pectoris
     Route: 065
  15. HYDROCORTISONE [Concomitant]
     Active Substance: HYDROCORTISONE
     Indication: Rash
     Route: 065
  16. HYDROMORPHONE [Concomitant]
     Active Substance: HYDROMORPHONE
     Indication: Back pain
     Route: 065
  17. LEVOFLOXACIN [Concomitant]
     Active Substance: LEVOFLOXACIN
     Indication: Cough
     Route: 065
  18. LOPERAMIDE [Concomitant]
     Active Substance: LOPERAMIDE
     Indication: Prophylaxis against diarrhoea
     Route: 065
  19. LORATADINE [Concomitant]
     Active Substance: LORATADINE
     Indication: Prophylaxis
     Route: 065
  20. POLYETHYLENE GLYCOLS [Concomitant]
     Active Substance: POLYETHYLENE GLYCOLS
     Indication: Constipation
     Route: 065
  21. METOCLOPRAMIDE [Concomitant]
     Active Substance: METOCLOPRAMIDE
     Indication: Prophylaxis of nausea and vomiting
     Route: 065
  22. METOPROLOL [Concomitant]
     Active Substance: METOPROLOL
     Indication: Hypertension
     Route: 065
  23. RANITIDINE [Concomitant]
     Active Substance: RANITIDINE
     Indication: Prophylaxis
     Route: 065
  24. ROSUVASTATIN [Concomitant]
     Active Substance: ROSUVASTATIN
     Indication: Hyperlipidaemia
     Route: 065

REACTIONS (2)
  - Pneumonia [Fatal]
  - Pneumonitis [Fatal]
